FAERS Safety Report 6558123-7 (Version None)
Quarter: 2010Q1

REPORT INFORMATION
  Report Type: 
  Country: None (occurrence: None)
  Receive Date: 20100129
  Receipt Date: 20100127
  Transmission Date: 20100710
  Serious: Yes (Hospitalization)
  Sender: FDA-Public Use
  Company Number: B0592870A

PATIENT
  Sex: Male

DRUGS (18)
  1. ZOVIRAX [Suspect]
     Route: 042
     Dates: start: 20090807, end: 20090812
  2. BISOPROLOL FUMARATE [Concomitant]
     Dosage: 5MG TWICE PER DAY
     Route: 065
  3. KARDEGIC [Concomitant]
     Dosage: 160MG PER DAY
     Route: 065
  4. TAHOR [Concomitant]
     Dosage: 40MG PER DAY
     Route: 065
  5. FOLIC ACID [Concomitant]
     Dosage: 5MG PER DAY
     Route: 065
  6. GLUCOPHAGE [Concomitant]
     Dosage: 850MG THREE TIMES PER DAY
     Route: 065
  7. STILNOX [Concomitant]
     Dosage: 10MG PER DAY
     Route: 065
  8. TEGRETOL [Concomitant]
     Dosage: 100MG THREE TIMES PER DAY
     Route: 065
  9. MYOLASTAN [Concomitant]
     Route: 065
  10. ACUPAN [Concomitant]
     Route: 065
  11. NOVONORM [Concomitant]
     Route: 065
  12. ATARAX [Concomitant]
     Dosage: 25MG PER DAY
     Route: 065
  13. LAROXYL [Concomitant]
     Dosage: 10DROP PER DAY
     Route: 065
  14. LYRICA [Concomitant]
     Dosage: 50MG TWICE PER DAY
     Route: 065
  15. TRIATEC [Concomitant]
     Dosage: 2.5MG PER DAY
     Route: 065
  16. ACUPAN [Concomitant]
     Indication: PAIN
     Dosage: 20MG AS REQUIRED
     Route: 065
  17. CLAFORAN [Concomitant]
     Indication: CITROBACTER INFECTION
     Route: 065
     Dates: start: 20090806
  18. GENTAMICIN [Concomitant]
     Indication: CITROBACTER INFECTION
     Route: 065
     Dates: start: 20090806

REACTIONS (2)
  - CHOLESTASIS [None]
  - HEPATOCELLULAR INJURY [None]
